FAERS Safety Report 7625284-8 (Version None)
Quarter: 2011Q3

REPORT INFORMATION
  Report Type: 
  Country: None (occurrence: None)
  Receive Date: 20110713
  Receipt Date: 20110628
  Transmission Date: 20111222
  Serious: Yes (Life-Threatening, Hospitalization, Disabling)
  Sender: FDA-Public Use
  Company Number: 2011MA008254

PATIENT
  Age: 18 Year
  Sex: Male

DRUGS (3)
  1. HALOPERIDOL [Suspect]
     Indication: TIC
     Dosage: IV
     Route: 042
  2. TIAPRIDE (TIAPRIDE) [Suspect]
     Indication: TIC
     Dosage: IV
     Route: 042
  3. CLONAZEPAM [Suspect]
     Indication: TIC
     Dosage: IV
     Route: 042

REACTIONS (9)
  - TIC [None]
  - PYREXIA [None]
  - HYPERHIDROSIS [None]
  - BLOOD CREATINE PHOSPHOKINASE INCREASED [None]
  - OBSESSIVE THOUGHTS [None]
  - DRUG WITHDRAWAL SYNDROME [None]
  - PAIN [None]
  - SINUS TACHYCARDIA [None]
  - SLEEP DISORDER [None]
